FAERS Safety Report 7995901-1 (Version None)
Quarter: 2011Q4

REPORT INFORMATION
  Report Type: 
  Country: None (occurrence: None)
  Receive Date: 20111220
  Receipt Date: 20111212
  Transmission Date: 20120403
  Serious: Yes (Other)
  Sender: FDA-Public Use
  Company Number: GB-ASTRAZENECA-2011SE75373

PATIENT
  Sex: Male

DRUGS (2)
  1. WARFARIN SODIUM [Concomitant]
     Indication: DEEP VEIN THROMBOSIS
     Dates: start: 20111201
  2. ZOLADEX [Suspect]
     Route: 058

REACTIONS (1)
  - DEEP VEIN THROMBOSIS [None]
